FAERS Safety Report 24608621 (Version 1)
Quarter: 2024Q4

REPORT INFORMATION
  Report Type: Spontaneous
  Country: US (occurrence: US)
  Receive Date: 20241112
  Receipt Date: 20241112
  Transmission Date: 20250114
  Serious: No
  Sender: SHIONOGI
  Company Number: US-shionogi-202400000554

PATIENT
  Age: 61 Year
  Sex: Female

DRUGS (6)
  1. CEFIDEROCOL [Suspect]
     Active Substance: CEFIDEROCOL
     Indication: Acinetobacter infection
  2. CEFIDEROCOL [Suspect]
     Active Substance: CEFIDEROCOL
     Indication: Drug resistance
  3. CEFIDEROCOL [Suspect]
     Active Substance: CEFIDEROCOL
     Indication: Abdominal infection
  4. FOSFOMYCIN [Suspect]
     Active Substance: FOSFOMYCIN
     Indication: Abdominal infection
  5. FOSFOMYCIN [Suspect]
     Active Substance: FOSFOMYCIN
     Indication: Acinetobacter infection
  6. FOSFOMYCIN [Suspect]
     Active Substance: FOSFOMYCIN
     Indication: Drug resistance

REACTIONS (2)
  - Drug resistance [Unknown]
  - Treatment failure [Unknown]
